FAERS Safety Report 9293418 (Version 2)
Quarter: 2013Q4

REPORT INFORMATION
  Report Type: Report from Study
  Country: JP (occurrence: JP)
  Receive Date: 20130517
  Receipt Date: 20131009
  Transmission Date: 20140711
  Serious: Yes (Disabling, Other)
  Sender: FDA-Public Use
  Company Number: JP-ROCHE-1225170

PATIENT
  Age: 65 Year
  Sex: Male

DRUGS (6)
  1. ALTEPLASE [Suspect]
     Indication: EMBOLIC STROKE
     Route: 042
     Dates: start: 20100830, end: 20100830
  2. EDARAVONE [Suspect]
     Indication: PRODUCT USED FOR UNKNOWN INDICATION
     Route: 041
  3. ARGATROBAN [Concomitant]
     Route: 041
     Dates: start: 20100831, end: 20100901
  4. UROKINASE [Concomitant]
     Route: 041
     Dates: start: 20100831, end: 20100831
  5. CLOPIDOGREL [Concomitant]
     Route: 048
     Dates: start: 20100902
  6. ASPIRIN [Concomitant]

REACTIONS (2)
  - Basilar artery occlusion [Recovered/Resolved with Sequelae]
  - Drug-induced liver injury [Recovered/Resolved]
